FAERS Safety Report 14321266 (Version 2)
Quarter: 2018Q1

REPORT INFORMATION
  Report Type: Spontaneous
  Country: IT (occurrence: IT)
  Receive Date: 20171223
  Receipt Date: 20180212
  Transmission Date: 20180509
  Serious: Yes (Hospitalization, Other)
  Sender: FDA-Public Use
  Company Number: IT-MYLANLABS-2017M1080782

PATIENT
  Age: 65 Year
  Sex: Female

DRUGS (8)
  1. DECADRON [Concomitant]
     Active Substance: DEXAMETHASONE
     Indication: PRODUCT USED FOR UNKNOWN INDICATION
     Dosage: UNK
  2. TIROSINT [Concomitant]
     Active Substance: LEVOTHYROXINE SODIUM
     Indication: PRODUCT USED FOR UNKNOWN INDICATION
     Dosage: 100 MICROGRAMS/ML ORAL DROPS SOLUTION 20 ML BOTTLE
     Route: 048
  3. PACLITAXEL. [Suspect]
     Active Substance: PACLITAXEL
     Indication: OVARIAN CANCER
     Dosage: 270 MG, CYCLE
     Route: 041
     Dates: start: 20170508, end: 20170825
  4. ZOFRAN [Concomitant]
     Active Substance: ONDANSETRON HYDROCHLORIDE
     Indication: PRODUCT USED FOR UNKNOWN INDICATION
     Route: 042
  5. AVASTIN [Suspect]
     Active Substance: BEVACIZUMAB
     Indication: OVARIAN CANCER
     Dosage: 825 MG, CYCLE
     Route: 042
     Dates: start: 20170508, end: 20170825
  6. CARBOPLATIN. [Suspect]
     Active Substance: CARBOPLATIN
     Indication: OVARIAN CANCER
     Dosage: 580 MG, CYCLE
     Route: 041
     Dates: start: 20170508, end: 20170825
  7. AVASTIN [Suspect]
     Active Substance: BEVACIZUMAB
     Dosage: 1 X 400 MG VIAL
     Route: 042
     Dates: start: 20170530, end: 20170825
  8. LONQUEX [Concomitant]
     Active Substance: LIPEGFILGRASTIM
     Indication: PRODUCT USED FOR UNKNOWN INDICATION
     Route: 058

REACTIONS (2)
  - Venous thrombosis [Recovered/Resolved]
  - Embolism venous [Unknown]

NARRATIVE: CASE EVENT DATE: 20170825
